FAERS Safety Report 8862054 (Version 2)
Quarter: 2013Q1

REPORT INFORMATION
  Report Type: Spontaneous
  Country: US (occurrence: US)
  Receive Date: 20121026
  Receipt Date: 20130102
  Transmission Date: 20140127
  Serious: Yes (Congenital Anomaly, Other)
  Sender: FDA-Public Use
  Company Number: US-PFIZER INC-2012263708

PATIENT
  Sex: Male
  Weight: 3.9 kg

DRUGS (11)
  1. ZOLOFT [Suspect]
     Dosage: 50 MG, UNK
     Route: 064
     Dates: start: 19970916, end: 19980427
  2. ZOLOFT [Suspect]
     Dosage: 100 MG, UNK
     Route: 064
     Dates: start: 19971031, end: 19980326
  3. PRENATAL VITAMINS [Concomitant]
     Dosage: UNK
     Route: 064
     Dates: start: 19980804
  4. DIFLUCAN [Concomitant]
     Dosage: UNK
     Route: 064
  5. ANUSOL [Concomitant]
     Dosage: UNK
     Route: 064
  6. HYDROCODONE [Concomitant]
     Dosage: UNK
     Route: 064
  7. ZITHROMAX [Concomitant]
     Dosage: 250 MG, UNK
     Route: 064
     Dates: start: 19980905, end: 199809
  8. PROMETHAZINE [Concomitant]
     Dosage: UNK
     Route: 064
  9. TYLENOL [Concomitant]
     Dosage: UNK
     Route: 064
  10. HEMOCYTE-F TABLET [Concomitant]
     Dosage: UNK
     Route: 064
     Dates: start: 19981111, end: 199812
  11. AMBIEN [Concomitant]
     Dosage: 5 MG, UNK
     Route: 064
     Dates: start: 19981207, end: 199812

REACTIONS (8)
  - Maternal exposure timing unspecified [Unknown]
  - Transposition of the great vessels [Unknown]
  - Patent ductus arteriosus [Unknown]
  - Tricuspid valve incompetence [Unknown]
  - Pulmonary artery stenosis congenital [Not Recovered/Not Resolved]
  - Mitral valve incompetence [Unknown]
  - Congenital anomaly [Unknown]
  - Atrial septal defect [Unknown]
